FAERS Safety Report 13927701 (Version 1)
Quarter: 2017Q3

REPORT INFORMATION
  Report Type: Spontaneous
  Country: US (occurrence: US)
  Receive Date: 20170901
  Receipt Date: 20170901
  Transmission Date: 20171127
  Serious: Yes (Life-Threatening, Hospitalization, Other)
  Sender: FDA-Public Use
  Company Number: US-ELI_LILLY_AND_COMPANY-US201708010812

PATIENT
  Sex: Male

DRUGS (2)
  1. HUMALOG [Suspect]
     Active Substance: INSULIN LISPRO
     Dosage: UNK, UNKNOWN
     Route: 065
  2. HUMALOG [Suspect]
     Active Substance: INSULIN LISPRO
     Indication: PRODUCT USED FOR UNKNOWN INDICATION
     Dosage: UNK, UNKNOWN
     Route: 065

REACTIONS (9)
  - Brain oedema [Recovered/Resolved]
  - Product storage error [Unknown]
  - Paralysis [Unknown]
  - Fall [Unknown]
  - Hypoglycaemic seizure [Unknown]
  - Cerebral disorder [Unknown]
  - Blood glucose decreased [Unknown]
  - Blood glucose increased [Unknown]
  - Craniocerebral injury [Unknown]

NARRATIVE: CASE EVENT DATE: 1999
